FAERS Safety Report 25603179 (Version 5)
Quarter: 2025Q3

REPORT INFORMATION
  Report Type: Spontaneous
  Country: GB (occurrence: GB)
  Receive Date: 20250724
  Receipt Date: 20250814
  Transmission Date: 20251020
  Serious: Yes (Life-Threatening, Hospitalization, Other)
  Sender: BAUSCH AND LOMB
  Company Number: GB-DR.FALKPHARMAGMBH-BU-210-25

PATIENT
  Age: 67 Year
  Sex: Female

DRUGS (1)
  1. BUDESONIDE [Suspect]
     Active Substance: BUDESONIDE
     Indication: Colitis microscopic
     Route: 065

REACTIONS (5)
  - Ventricular fibrillation [Recovered/Resolved]
  - Cardiac arrest [Recovered/Resolved]
  - Ventricular tachyarrhythmia [Recovered/Resolved]
  - Hypokalaemia [Recovered/Resolved]
  - Drug ineffective [Unknown]
